FAERS Safety Report 5318665-9 (Version None)
Quarter: 2007Q2

REPORT INFORMATION
  Report Type: 
  Country: None (occurrence: None)
  Receive Date: 20070508
  Receipt Date: 20070503
  Transmission Date: 20071010
  Serious: Yes (Death, Hospitalization)
  Sender: FDA-Public Use
  Company Number: PHEH2007US06786

PATIENT
  Age: 65 Year
  Sex: Male

DRUGS (1)
  1. GLEEVEC [Suspect]
     Indication: CHRONIC MYELOID LEUKAEMIA
     Dosage: UNK, QD
     Dates: start: 20060724, end: 20060810

REACTIONS (9)
  - ANGIOGRAM [None]
  - BLOOD COUNT ABNORMAL [None]
  - CHEST PAIN [None]
  - DEATH [None]
  - MEDICATION ERROR [None]
  - MYOCARDIAL INFARCTION [None]
  - PLATELET COUNT DECREASED [None]
  - VASCULAR BYPASS GRAFT [None]
  - WHITE BLOOD CELL COUNT INCREASED [None]
